FAERS Safety Report 16894023 (Version 2)
Quarter: 2019Q4

REPORT INFORMATION
  Report Type: Spontaneous
  Country: PT (occurrence: FR)
  Receive Date: 20191008
  Receipt Date: 20191227
  Transmission Date: 20200122
  Serious: Yes (Hospitalization, Other)
  Sender: FDA-Public Use
  Company Number: PT-SUNOVION-2019SUN004106

PATIENT

DRUGS (14)
  1. ZEBINIX [Suspect]
     Active Substance: ESLICARBAZEPINE ACETATE
     Dosage: 1 DF IN THE MORNING
     Route: 048
     Dates: start: 201908, end: 20190903
  2. DEPAKOTE [Concomitant]
     Active Substance: DIVALPROEX SODIUM
     Dosage: 500 MG
     Dates: start: 201909
  3. ZEBINIX [Suspect]
     Active Substance: ESLICARBAZEPINE ACETATE
     Indication: SEIZURE
     Dosage: 800 MG: ONE TABLET PER DAY
     Route: 048
     Dates: start: 201908
  4. LEVETIRACETAM ARROW [Concomitant]
     Active Substance: LEVETIRACETAM
     Dosage: 1500 MILLIGRAM
     Route: 048
     Dates: start: 201907, end: 20190801
  5. TEGRETOL [Concomitant]
     Active Substance: CARBAMAZEPINE
     Indication: SEIZURE
     Dosage: UNK
     Route: 048
     Dates: end: 2019
  6. VIMPAT [Concomitant]
     Active Substance: LACOSAMIDE
     Indication: SEIZURE
     Dosage: 50 MG, 3 TABLET (S) AT 8 A.M., 3 TABLET (S) AT 8 P.M
     Route: 065
     Dates: start: 201909, end: 201909
  7. PARACETAMOL ARROW [Concomitant]
     Active Substance: ACETAMINOPHEN
     Indication: PAIN
     Dosage: 3000 MILLIGRAM
     Route: 048
  8. GARDENAL [Concomitant]
     Active Substance: PHENOBARBITAL
     Indication: SEIZURE
     Dosage: 150 MILLIGRAM, DAILY
     Route: 048
     Dates: end: 201909
  9. VALIUM [Concomitant]
     Active Substance: DIAZEPAM
     Dosage: UNK
  10. LEVETIRACETAM ARROW [Concomitant]
     Active Substance: LEVETIRACETAM
     Indication: SEIZURE
     Dosage: 500 MILLIGRAM
     Route: 048
     Dates: start: 20190810, end: 20190817
  11. LEVETIRACETAM ARROW [Concomitant]
     Active Substance: LEVETIRACETAM
     Dosage: 1000 MILLIGRAM
     Route: 048
     Dates: start: 20190802, end: 20190809
  12. KEPPRA [Concomitant]
     Active Substance: LEVETIRACETAM
     Indication: SEIZURE
     Dosage: UNKNOWN
     Route: 048
     Dates: end: 20190817
  13. VIMPAT [Concomitant]
     Active Substance: LACOSAMIDE
     Dosage: UNK
     Route: 065
     Dates: start: 201909
  14. LANSOPRAZOLE MYLAN [Concomitant]
     Active Substance: LANSOPRAZOLE
     Route: 048

REACTIONS (8)
  - Hypomania [Recovering/Resolving]
  - Anxiety [Recovered/Resolved]
  - Logorrhoea [Recovered/Resolved]
  - Insomnia [Recovered/Resolved]
  - Status epilepticus [Recovered/Resolved]
  - Hallucination, visual [Recovered/Resolved]
  - Hyponatraemia [Recovered/Resolved]
  - Delusional disorder, persecutory type [Recovered/Resolved]

NARRATIVE: CASE EVENT DATE: 20190819
